FAERS Safety Report 26196435 (Version 1)
Quarter: 2025Q4

REPORT INFORMATION
  Report Type: Spontaneous
  Country: GB (occurrence: None)
  Receive Date: 20251224
  Receipt Date: 20251224
  Transmission Date: 20260117
  Serious: Yes (Life-Threatening, Other)
  Sender: ORGANON
  Company Number: None

PATIENT
  Age: 38 Year
  Sex: Female

DRUGS (10)
  1. MIRTAZAPINE [Suspect]
     Active Substance: MIRTAZAPINE
     Indication: Obsessive-compulsive disorder
     Dosage: 45 MILLIGRAM, QD
  2. MIRTAZAPINE [Suspect]
     Active Substance: MIRTAZAPINE
     Indication: Post-traumatic stress disorder
  3. Ferrous Fumarate 420mg/day [Concomitant]
     Indication: Iron deficiency
     Dosage: 420MG/DAY
     Dates: start: 20230801
  4. Ferrous Fumarate 420mg/day [Concomitant]
     Indication: Alopecia
  5. FULTIUM-D3 800IU [Concomitant]
     Indication: Vitamin D decreased
     Dosage: UNK
  6. Omega 3-6-9 supplement [Concomitant]
     Dosage: UNK
  7. Pregnacare breastfeeding vitamins with Omega 3 [Concomitant]
     Indication: Breast feeding
     Dosage: UNK
  8. Omega 3-6-9 supplement [Concomitant]
     Dosage: UNK
  9. Omega 3-6-9 supplement [Concomitant]
     Indication: Aphasia
     Dosage: UNK
  10. Omega 3-6-9 supplement [Concomitant]
     Indication: Brain fog

REACTIONS (7)
  - Cholecystitis [Unknown]
  - Pancreatitis necrotising [Unknown]
  - Weight decreased [Unknown]
  - Pancreatitis acute [Recovering/Resolving]
  - Malnutrition [Unknown]
  - Maternal exposure during breast feeding [Unknown]
  - Product use in unapproved indication [Unknown]

NARRATIVE: CASE EVENT DATE: 20250316
